FAERS Safety Report 5816267-9 (Version None)
Quarter: 2008Q3

REPORT INFORMATION
  Report Type: 
  Country: None (occurrence: None)
  Receive Date: 20080717
  Receipt Date: 20080717
  Transmission Date: 20090109
  Serious: Yes (Other)
  Sender: FDA-Public Use
  Company Number: None

PATIENT
  Sex: Female
  Weight: 77.1115 kg

DRUGS (2)
  1. BONIVA [Suspect]
     Indication: BONE DISORDER
     Dosage: 150 MG 1 MONTHLY
     Dates: start: 20060701, end: 20080101
  2. BONIVA [Suspect]
     Indication: OSTEOPOROSIS
     Dosage: 150 MG 1 MONTHLY
     Dates: start: 20060701, end: 20080101

REACTIONS (4)
  - FACIAL PAIN [None]
  - LIP SWELLING [None]
  - ORAL INFECTION [None]
  - PAIN IN JAW [None]
